FAERS Safety Report 5397785-7 (Version None)
Quarter: 2007Q3

REPORT INFORMATION
  Report Type: 
  Country: None (occurrence: None)
  Receive Date: 20070726
  Receipt Date: 20070720
  Transmission Date: 20080115
  Serious: Yes (Other)
  Sender: FDA-Public Use
  Company Number: B0480630A

PATIENT
  Sex: Female
  Weight: 68 kg

DRUGS (3)
  1. SERETIDE [Suspect]
     Indication: ASTHMA
     Route: 055
     Dates: start: 20070206, end: 20070401
  2. BEROTEC [Concomitant]
     Indication: ASTHMA
     Dosage: 2ACTU FOUR TIMES PER DAY
     Route: 055
  3. BUDESONIDE [Concomitant]
     Dates: end: 20070206

REACTIONS (1)
  - VISUAL ACUITY REDUCED [None]
